FAERS Safety Report 22956684 (Version 3)
Quarter: 2023Q4

REPORT INFORMATION
  Report Type: Spontaneous
  Country: PL (occurrence: PL)
  Receive Date: 20230919
  Receipt Date: 20231212
  Transmission Date: 20240109
  Serious: Yes (Other)
  Sender: FDA-Public Use
  Company Number: PL-DSPHARMA-2023SUN001093

PATIENT

DRUGS (4)
  1. LURASIDONE HYDROCHLORIDE [Suspect]
     Active Substance: LURASIDONE HYDROCHLORIDE
     Indication: Schizophrenia
     Dosage: 37 MG
     Route: 048
     Dates: start: 202108
  2. LURASIDONE HYDROCHLORIDE [Suspect]
     Active Substance: LURASIDONE HYDROCHLORIDE
     Dosage: 37 MG, BID
     Route: 048
  3. PALIPERIDONE [Suspect]
     Active Substance: PALIPERIDONE
     Indication: Schizophrenia
     Dosage: 100 MG, MONTHLY
     Route: 030
  4. PALIPERIDONE [Suspect]
     Active Substance: PALIPERIDONE
     Dosage: 75 MG, MONTHLY
     Route: 030

REACTIONS (3)
  - Neutropenia [Recovered/Resolved]
  - Leukopenia [Recovered/Resolved]
  - Inappropriate schedule of product administration [Unknown]
